FAERS Safety Report 20308817 (Version 1)
Quarter: 2022Q1

REPORT INFORMATION
  Report Type: Spontaneous
  Country: CN (occurrence: CN)
  Receive Date: 20220107
  Receipt Date: 20220107
  Transmission Date: 20220424
  Serious: Yes (Other)
  Sender: FDA-Public Use
  Company Number: CN-GLAXOSMITHKLINE-CN2022APC001304

PATIENT
  Age: 73 Year
  Sex: Male
  Weight: 80 kg

DRUGS (5)
  1. VENTOLIN [Suspect]
     Active Substance: ALBUTEROL SULFATE
     Indication: Increased viscosity of bronchial secretion
     Dosage: 5.000 MG, BID
     Route: 055
     Dates: start: 20190218, end: 20190313
  2. ZYVOX [Suspect]
     Active Substance: LINEZOLID
     Indication: Chronic obstructive pulmonary disease
     Dosage: 600 MG, BID
     Route: 042
     Dates: start: 20190307, end: 20190313
  3. ZYVOX [Suspect]
     Active Substance: LINEZOLID
     Indication: Anti-infective therapy
  4. PULMICORT TURBUHALER [Concomitant]
     Active Substance: BUDESONIDE
     Indication: Increased viscosity of bronchial secretion
     Dosage: 2 MG, BID
     Route: 055
     Dates: start: 20190218, end: 20190313
  5. ATROVENT [Concomitant]
     Active Substance: IPRATROPIUM BROMIDE
     Indication: Increased viscosity of bronchial secretion
     Dosage: 0.500 MG, BID
     Route: 055
     Dates: start: 20190218, end: 20190313

REACTIONS (3)
  - Myoclonus [Recovered/Resolved]
  - Muscle twitching [Unknown]
  - Tremor [Recovered/Resolved]

NARRATIVE: CASE EVENT DATE: 20190310
